FAERS Safety Report 6751564-4 (Version None)
Quarter: 2010Q2

REPORT INFORMATION
  Report Type: 
  Country: None (occurrence: None)
  Receive Date: 20100602
  Receipt Date: 20100528
  Transmission Date: 20101027
  Serious: Yes (Hospitalization)
  Sender: FDA-Public Use
  Company Number: IT-ROCHE-706165

PATIENT
  Sex: Female

DRUGS (5)
  1. RIVOTRIL [Suspect]
     Indication: DEPRESSION
     Dosage: FREQUENCY GIVEN AS: TOTAL.
     Route: 048
     Dates: start: 20100318, end: 20100318
  2. DEPAKENE [Suspect]
     Indication: DEPRESSION
     Dosage: FREQUENCY GIVEN AS: TOTAL
     Route: 048
     Dates: start: 20100318, end: 20100318
  3. CIPRALEX [Concomitant]
     Route: 048
  4. BENTELAN [Concomitant]
  5. VALIUM [Concomitant]
     Dates: start: 20100318, end: 20100318

REACTIONS (2)
  - DRUG ABUSE [None]
  - VOMITING [None]
